FAERS Safety Report 22203064 (Version 1)
Quarter: 2023Q2

REPORT INFORMATION
  Report Type: Spontaneous
  Country: FR (occurrence: FR)
  Receive Date: 20230412
  Receipt Date: 20230412
  Transmission Date: 20230722
  Serious: Yes (Other)
  Sender: FDA-Public Use
  Company Number: None

PATIENT
  Age: 75 Year
  Sex: Male
  Weight: 82 kg

DRUGS (3)
  1. VANCOMYCIN [Suspect]
     Active Substance: VANCOMYCIN
     Indication: Staphylococcal infection
     Dosage: 3 DOSAGE FORM, QD
     Route: 042
     Dates: start: 20230302, end: 20230307
  2. OFLOXACIN [Suspect]
     Active Substance: OFLOXACIN
     Indication: Staphylococcal infection
     Dosage: 3 DOSAGE FORM, QD
     Route: 048
     Dates: start: 20230307, end: 20230310
  3. RIFAMPIN [Suspect]
     Active Substance: RIFAMPIN
     Indication: Staphylococcal infection
     Dosage: 3 DOSAGE FORM, QD
     Route: 048
     Dates: start: 20230307, end: 20230310

REACTIONS (2)
  - Vascular purpura [Recovering/Resolving]
  - Eosinophilia [Recovered/Resolved]

NARRATIVE: CASE EVENT DATE: 20230305
